FAERS Safety Report 21614827 (Version 2)
Quarter: 2022Q4

REPORT INFORMATION
  Report Type: Spontaneous
  Country: IT (occurrence: IT)
  Receive Date: 20221118
  Receipt Date: 20221122
  Transmission Date: 20230113
  Serious: Yes (Other)
  Sender: FDA-Public Use
  Company Number: IT-MYLANLABS-2022M1129235

PATIENT
  Sex: Male

DRUGS (5)
  1. PREDNISONE [Suspect]
     Active Substance: PREDNISONE
     Indication: Nodal marginal zone B-cell lymphoma stage IV
     Dosage: UNK, CYCLE (RECEIVED UNDER FIRST LINE R-CHOP IMMUNO-CHEMOTHERAPY)
     Route: 065
     Dates: start: 2010
  2. CYCLOPHOSPHAMIDE [Suspect]
     Active Substance: CYCLOPHOSPHAMIDE
     Indication: Nodal marginal zone B-cell lymphoma stage IV
     Dosage: UNK, CYCLE (RECEIVED UNDER FIRST LINE R-CHOP IMMUNO-CHEMOTHERAPY)
     Route: 065
     Dates: start: 2010
  3. DOXORUBICIN [Suspect]
     Active Substance: DOXORUBICIN
     Indication: Nodal marginal zone B-cell lymphoma stage IV
     Dosage: UNK, CYCLE (RECEIVED UNDER FIRST LINE R-CHOP IMMUNO-CHEMOTHERAPY)
     Route: 065
     Dates: start: 2010
  4. RITUXIMAB [Suspect]
     Active Substance: RITUXIMAB
     Indication: Nodal marginal zone B-cell lymphoma stage IV
     Dosage: UNK, CYCLE (RECEIVED UNDER FIRST LINE R-CHOP IMMUNO-CHEMOTHERAPY)
     Route: 065
     Dates: start: 2010
  5. VINCRISTINE [Suspect]
     Active Substance: VINCRISTINE
     Indication: Nodal marginal zone B-cell lymphoma stage IV
     Dosage: UNK UNK, CYCLE, RECEIVED UNDER FIRST LINE ?.
     Route: 065
     Dates: start: 2010

REACTIONS (2)
  - Drug ineffective [Unknown]
  - Disease progression [Unknown]

NARRATIVE: CASE EVENT DATE: 20180401
